FAERS Safety Report 15438676 (Version 2)
Quarter: 2018Q4

REPORT INFORMATION
  Report Type: Spontaneous
  Country: US (occurrence: US)
  Receive Date: 20180928
  Receipt Date: 20181204
  Transmission Date: 20190204
  Serious: No
  Sender: FDA-Public Use
  Company Number: US-ADAAP-201800133

PATIENT
  Age: 80 Year
  Sex: Female
  Weight: 59.9 kg

DRUGS (2)
  1. AMINO ACIDS [Concomitant]
     Active Substance: AMINO ACIDS
     Indication: PRODUCT USED FOR UNKNOWN INDICATION
     Route: 041
  2. LUTATHERA [Suspect]
     Active Substance: LUTETIUM OXODOTREOTIDE LU-177
     Indication: PRODUCT USED FOR UNKNOWN INDICATION
     Route: 042
     Dates: start: 20180530, end: 20180530

REACTIONS (4)
  - Vulvovaginal discomfort [Recovering/Resolving]
  - Radiation skin injury [Recovering/Resolving]
  - Accidental underdose [Unknown]
  - Vaginal ulceration [Recovering/Resolving]

NARRATIVE: CASE EVENT DATE: 20180530
